FAERS Safety Report 4497824-1 (Version None)
Quarter: 2004Q4

REPORT INFORMATION
  Report Type: 
  Country: None (occurrence: None)
  Receive Date: 20041108
  Receipt Date: 20041011
  Transmission Date: 20050328
  Serious: Yes (Death)
  Sender: FDA-Public Use
  Company Number: PERIO-2004-0091

PATIENT
  Age: 70 Year
  Sex: Male

DRUGS (2)
  1. DOXYCYCLINE HYCLATE [Suspect]
     Indication: PERIODONTITIS
     Dosage: SEE IMAGE
     Route: 049
     Dates: start: 20040510
  2. DOXYCYCLINE HYCLATE [Suspect]
     Indication: PERIODONTITIS
     Dosage: SEE IMAGE
     Route: 049
     Dates: start: 20040601

REACTIONS (1)
  - COMPLETED SUICIDE [None]
